FAERS Safety Report 6071394-9 (Version None)
Quarter: 2009Q1

REPORT INFORMATION
  Report Type: 
  Country: None (occurrence: None)
  Receive Date: 20090204
  Receipt Date: 20090120
  Transmission Date: 20090719
  Serious: Yes (Other)
  Sender: FDA-Public Use
  Company Number: 200901006

PATIENT
  Age: 51 Year
  Sex: Male
  Weight: 136.0791 kg

DRUGS (10)
  1. TESTIM [Suspect]
     Indication: BLOOD TESTOSTERONE DECREASED
     Dosage: 50 MG, DAILY, TRANSDERMAL
     Route: 062
     Dates: start: 20081227, end: 20081227
  2. BUMEX [Concomitant]
  3. POTASSIUM CHLORIDE [Concomitant]
  4. VALIUM [Concomitant]
  5. ALBUTEROL [Concomitant]
  6. SYMBICORT [Concomitant]
  7. PULMICORT [Concomitant]
  8. VITAMIN D [Concomitant]
  9. VERAMYST [Concomitant]
  10. FUROSEMIDE [Concomitant]

REACTIONS (5)
  - ACTIVITIES OF DAILY LIVING IMPAIRED [None]
  - DRUG ADMINISTERED AT INAPPROPRIATE SITE [None]
  - DYSPNOEA [None]
  - PHARYNGEAL OEDEMA [None]
  - SWOLLEN TONGUE [None]
